FAERS Safety Report 8137922-4 (Version None)
Quarter: 2012Q1

REPORT INFORMATION
  Report Type: 
  Country: None (occurrence: None)
  Receive Date: 20120215
  Receipt Date: 20110817
  Transmission Date: 20120608
  Serious: No
  Sender: FDA-Public Use
  Company Number: US-ROXANE LABORATORIES, INC.-2011-RO-00771RO

PATIENT
  Sex: Male
  Weight: 77 kg

DRUGS (1)
  1. FLUTICASONE PROPIONATE [Suspect]
     Indication: NASAL CONGESTION
     Route: 045
     Dates: start: 20110506, end: 20110513

REACTIONS (4)
  - NASAL ODOUR [None]
  - ANOSMIA [None]
  - EPISTAXIS [None]
  - DYSGEUSIA [None]
